FAERS Safety Report 4603022-0 (Version None)
Quarter: 2005Q1

REPORT INFORMATION
  Report Type: 
  Country: None (occurrence: None)
  Receive Date: 20050309
  Receipt Date: 20050225
  Transmission Date: 20050727
  Serious: No
  Sender: FDA-Public Use
  Company Number: PHHO2005CA03462

PATIENT
  Sex: Male

DRUGS (6)
  1. CLOZARIL [Suspect]
     Dosage: 350MG AM, 550MG HS
     Dates: start: 19971002
  2. METAMUCIL-2 [Concomitant]
  3. MULTI-VITAMINS [Concomitant]
  4. LACTAID [Concomitant]
  5. LAMOTRIGINE [Concomitant]
     Dosage: 150 MG, UNK
  6. CLONAZEPAM [Concomitant]
     Dosage: 10 MG, UNK

REACTIONS (1)
  - PANCYTOPENIA [None]
